FAERS Safety Report 26107501 (Version 1)
Quarter: 2025Q4

REPORT INFORMATION
  Report Type: Spontaneous
  Country: US (occurrence: None)
  Receive Date: 20251126
  Receipt Date: 20251126
  Transmission Date: 20260117
  Serious: Yes (Hospitalization)
  Sender: FDA-CTU
  Company Number: None

PATIENT

DRUGS (11)
  1. LENALIDOMIDE [Suspect]
     Active Substance: LENALIDOMIDE
     Indication: Plasma cell myeloma
     Route: 048
     Dates: start: 20251125
  2. ACETAMIN TAB 500MG [Concomitant]
  3. ALLOPURINOL TAB 300MG [Concomitant]
  4. CETIRIZINE HCL [Concomitant]
     Active Substance: CETIRIZINE HYDROCHLORIDE
  5. COENZYME Q10 TAB 100MG [Concomitant]
  6. ELIOUIS TAB 2.5MG [Concomitant]
  7. FLONASE ALGY SPR 50MCG [Concomitant]
  8. GABAPENTIN [Concomitant]
     Active Substance: GABAPENTIN
  9. IBUPROFEN [Concomitant]
     Active Substance: IBUPROFEN
  10. LEVOFLOXACIN TAB 250MG [Concomitant]
  11. LEVOTHYROXIN TAB 25MCG [Concomitant]

REACTIONS (7)
  - Pain [None]
  - Blood pressure increased [None]
  - Hyponatraemia [None]
  - Neuropathy peripheral [None]
  - Acute kidney injury [None]
  - Anaemia [None]
  - Hypercalcaemia [None]
